FAERS Safety Report 24812986 (Version 2)
Quarter: 2025Q1

REPORT INFORMATION
  Report Type: Report from Study
  Country: US (occurrence: US)
  Receive Date: 20250107
  Receipt Date: 20250210
  Transmission Date: 20250408
  Serious: Yes (Other)
  Sender: ACADIA PHARMACEUTICALS
  Company Number: US-ACADIA PHARMACEUTICALS INC.-ACA-2025-PIM-000092

PATIENT
  Sex: Male

DRUGS (29)
  1. NUPLAZID [Suspect]
     Active Substance: PIMAVANSERIN TARTRATE
     Indication: Parkinson^s disease
     Dosage: 34 MILLIGRAM, QD
     Route: 048
     Dates: start: 20190912
  2. ASPIRIN [Concomitant]
     Active Substance: ASPIRIN
  3. BENICAR HCT [Concomitant]
     Active Substance: HYDROCHLOROTHIAZIDE\OLMESARTAN MEDOXOMIL
  4. BUMETANIDE [Concomitant]
     Active Substance: BUMETANIDE
  5. CARVEDILOL [Concomitant]
     Active Substance: CARVEDILOL
  6. CLONAZEPAM [Concomitant]
     Active Substance: CLONAZEPAM
  7. DIVALPROEX SODIUM [Concomitant]
     Active Substance: DIVALPROEX SODIUM
  8. DONEPEZIL [Concomitant]
     Active Substance: DONEPEZIL
  9. DORZOLAMIDE [Concomitant]
     Active Substance: DORZOLAMIDE
     Route: 047
  10. ENTRESTO [Concomitant]
     Active Substance: SACUBITRIL\VALSARTAN
  11. EPLERENONE [Concomitant]
     Active Substance: EPLERENONE
  12. FARXIGA [Concomitant]
     Active Substance: DAPAGLIFLOZIN PROPANEDIOL
  13. FINASTERIDE [Concomitant]
     Active Substance: FINASTERIDE
  14. FLUOXETINE [Concomitant]
     Active Substance: FLUOXETINE HYDROCHLORIDE
  15. LATANOPROST [Concomitant]
     Active Substance: LATANOPROST
  16. LOSARTAN POTASSIUM [Concomitant]
     Active Substance: LOSARTAN POTASSIUM
  17. MEMANTINE [Concomitant]
     Active Substance: MEMANTINE
  18. METFORMIN [Concomitant]
     Active Substance: METFORMIN HYDROCHLORIDE
  19. VITAMINS [Concomitant]
     Active Substance: VITAMINS
  20. MYRBETRIQ [Concomitant]
     Active Substance: MIRABEGRON
  21. PANTOPRAZOLE [Concomitant]
     Active Substance: PANTOPRAZOLE
  22. PATADAY [Concomitant]
     Active Substance: OLOPATADINE HYDROCHLORIDE
  23. QUETIAPINE [Concomitant]
     Active Substance: QUETIAPINE
  24. RESTASIS [Concomitant]
     Active Substance: CYCLOSPORINE
  25. TAMSULOSIN [Concomitant]
     Active Substance: TAMSULOSIN
  26. TUMS ULTRA [Concomitant]
     Active Substance: CALCIUM CARBONATE
  27. CHOLECALCIFEROL [Concomitant]
     Active Substance: CHOLECALCIFEROL
  28. ACETAMINOPHEN [Concomitant]
     Active Substance: ACETAMINOPHEN
  29. BENADRYL [Concomitant]
     Active Substance: DIPHENHYDRAMINE HYDROCHLORIDE

REACTIONS (5)
  - Hallucination [Unknown]
  - Blood pressure increased [Unknown]
  - Confusional state [Unknown]
  - Blood pressure fluctuation [Unknown]
  - Product dose omission issue [Unknown]
